FAERS Safety Report 6824369-3 (Version None)
Quarter: 2010Q3

REPORT INFORMATION
  Report Type: 
  Country: None (occurrence: None)
  Receive Date: 20100708
  Receipt Date: 20061024
  Transmission Date: 20110219
  Serious: No
  Sender: FDA-Public Use
  Company Number: US-PFIZER INC-2006131732

PATIENT
  Sex: Female
  Weight: 87.54 kg

DRUGS (3)
  1. CHANTIX [Suspect]
     Indication: SMOKING CESSATION THERAPY
     Dates: start: 20060917
  2. NICOTINE [Suspect]
     Indication: SMOKING CESSATION THERAPY
     Route: 062
     Dates: start: 20060901, end: 20060915
  3. OXYCODONE HCL [Concomitant]

REACTIONS (6)
  - ABNORMAL DREAMS [None]
  - FEELING OF BODY TEMPERATURE CHANGE [None]
  - MIDDLE INSOMNIA [None]
  - OROPHARYNGEAL PAIN [None]
  - RASH [None]
  - THERAPEUTIC RESPONSE DECREASED [None]
